FAERS Safety Report 4357925-5 (Version None)
Quarter: 2004Q2

REPORT INFORMATION
  Report Type: 
  Country: None (occurrence: None)
  Receive Date: 20040510
  Receipt Date: 20040430
  Transmission Date: 20050107
  Serious: Yes (Hospitalization)
  Sender: FDA-Public Use
  Company Number: 2004211309US

PATIENT
  Age: 40 Year
  Sex: Male

DRUGS (1)
  1. DIPENTUM [Suspect]
     Indication: COLITIS ULCERATIVE
     Dosage: ORAL
     Route: 048
     Dates: start: 20040406, end: 20040423

REACTIONS (3)
  - COLITIS [None]
  - CONDITION AGGRAVATED [None]
  - INFLAMMATORY BOWEL DISEASE [None]
